FAERS Safety Report 12472344 (Version 1)
Quarter: 2016Q2

REPORT INFORMATION
  Report Type: Report from Study
  Country: US (occurrence: US)
  Receive Date: 20160616
  Receipt Date: 20160616
  Transmission Date: 20160815
  Serious: No
  Sender: FDA-Public Use
  Company Number: ADR-2015-00684

PATIENT
  Age: 57 Year
  Sex: Female

DRUGS (3)
  1. DILAUDID [Suspect]
     Active Substance: HYDROMORPHONE HYDROCHLORIDE
     Dosage: 116.33 MCG/DAY
     Route: 037
     Dates: start: 20140922
  2. COMPOUNDED BACLOFEN [Suspect]
     Active Substance: BACLOFEN
     Dosage: 775.5 MCG/DAY
     Route: 037
     Dates: start: 20140922
  3. CLONIDINE. [Suspect]
     Active Substance: CLONIDINE
     Dosage: 38.78 MCG/DAY
     Route: 037
     Dates: start: 20140922

REACTIONS (3)
  - Disease progression [Unknown]
  - Muscle spasticity [Recovered/Resolved]
  - Sedation [Recovered/Resolved]

NARRATIVE: CASE EVENT DATE: 20141013
